FAERS Safety Report 7094366-4 (Version None)
Quarter: 2010Q4

REPORT INFORMATION
  Report Type: 
  Country: None (occurrence: None)
  Receive Date: 20101110
  Receipt Date: 20101103
  Transmission Date: 20110411
  Serious: Yes (Hospitalization)
  Sender: FDA-Public Use
  Company Number: IT-SANOFI-AVENTIS-2010SA066765

PATIENT
  Age: 74 Year
  Sex: Female

DRUGS (7)
  1. MULTAQ [Suspect]
     Indication: ATRIAL FIBRILLATION
     Route: 048
     Dates: start: 20101010
  2. DOXAZOSIN MESYLATE [Concomitant]
     Route: 048
  3. COUMADIN [Concomitant]
     Indication: THROMBOSIS PROPHYLAXIS
     Route: 048
  4. XANAX [Concomitant]
     Route: 065
  5. ALLOPURINOL [Concomitant]
     Route: 065
  6. ANTRA [Concomitant]
     Route: 065
  7. LENTO-KALIUM [Concomitant]
     Route: 065

REACTIONS (2)
  - BRADYCARDIA [None]
  - EXTRASYSTOLES [None]
